FAERS Safety Report 5117040-X (Version None)
Quarter: 2006Q3

REPORT INFORMATION
  Report Type: 
  Country: None (occurrence: None)
  Receive Date: 20060925
  Receipt Date: 20060912
  Transmission Date: 20061208
  Serious: Yes (Death, Other)
  Sender: FDA-Public Use
  Company Number: 2006106234

PATIENT
  Age: 80 Year
  Sex: Female

DRUGS (14)
  1. NORVASC [Suspect]
     Indication: ANGINA PECTORIS
     Dosage: ORAL
     Route: 048
     Dates: end: 20060501
  2. SAWADOL L (ISOSORBIDE DINITRATE) [Concomitant]
  3. DILTIAZEM [Concomitant]
  4. SIGMART (NICORANDIL) [Concomitant]
  5. ASPIRIN [Concomitant]
  6. ALMARL (AROTINOLOL HYDROCHLORIDE) [Concomitant]
  7. TICLOPIDINE HCL [Concomitant]
  8. VANARL N (TOCOPHERYL NICOTINATE) [Concomitant]
  9. ZESULAN (MEQUITAZINE) [Concomitant]
  10. HIBON (RIBOFLAVIN TETRABUTYRATE) [Concomitant]
  11. AMOBAN (ZOPICLONE) [Concomitant]
  12. CPG (ASCORBIC ACID, CALCIUM PANTOTHENATE) [Concomitant]
  13. LEVOFLOXACIN [Concomitant]
  14. DALACIN [Concomitant]

REACTIONS (4)
  - CONTRAINDICATION TO MEDICAL TREATMENT [None]
  - DYSGEUSIA [None]
  - EMPHYSEMA [None]
  - LUNG NEOPLASM MALIGNANT [None]
